FAERS Safety Report 9342356 (Version 1)
Quarter: 2013Q2

REPORT INFORMATION
  Report Type: Spontaneous
  Country: US (occurrence: None)
  Receive Date: 20130607
  Receipt Date: 20130607
  Transmission Date: 20140414
  Serious: Yes (Hospitalization, Other)
  Sender: FDA-Public Use
  Company Number: 54973 AE # 1384

PATIENT
  Age: 4 Month
  Sex: Male

DRUGS (1)
  1. HYLAND^S BABY TEETHING TABLETS [Suspect]
     Indication: TEETHING
     Dosage: 1 1/2 TAB PO BID EOD X1MO
     Route: 048

REACTIONS (3)
  - Convulsion [None]
  - Brain hypoxia [None]
  - Drooling [None]
